FAERS Safety Report 7893044-9 (Version None)
Quarter: 2011Q4

REPORT INFORMATION
  Report Type: 
  Country: None (occurrence: None)
  Receive Date: 20111104
  Receipt Date: 20110725
  Transmission Date: 20120403
  Serious: No
  Sender: FDA-Public Use
  Company Number: US-GLAXOSMITHKLINE-A0938793A

PATIENT
  Sex: Male

DRUGS (2)
  1. HORIZANT [Suspect]
     Indication: RESTLESS LEGS SYNDROME
  2. DOPAMINE HCL [Concomitant]

REACTIONS (1)
  - ASTHENIA [None]
